FAERS Safety Report 21518644 (Version 1)
Quarter: 2022Q4

REPORT INFORMATION
  Report Type: Spontaneous
  Country: US (occurrence: None)
  Receive Date: 20221027
  Receipt Date: 20221027
  Transmission Date: 20230113
  Serious: Yes (Other)
  Sender: FDA-Public Use
  Company Number: None

PATIENT
  Age: 29 Year
  Sex: Female
  Weight: 51.75 kg

DRUGS (1)
  1. ZOLOFT [Suspect]
     Active Substance: SERTRALINE HYDROCHLORIDE
     Indication: Anxiety
     Route: 048
     Dates: start: 20210816, end: 20210820

REACTIONS (5)
  - Abdominal pain [None]
  - Diarrhoea [None]
  - Depressed level of consciousness [None]
  - Decreased appetite [None]
  - Gluten sensitivity [None]

NARRATIVE: CASE EVENT DATE: 20210816
